FAERS Safety Report 7156254-4 (Version None)
Quarter: 2010Q4

REPORT INFORMATION
  Report Type: 
  Country: None (occurrence: None)
  Receive Date: 20101214
  Receipt Date: 20101202
  Transmission Date: 20110411
  Serious: Yes (Other)
  Sender: FDA-Public Use
  Company Number: US-RB-016588-10

PATIENT
  Sex: Female

DRUGS (1)
  1. MUCINEX D [Suspect]
     Dosage: PATIENT TOOK 5 ADVIL, 5 ASPIRIN, AND 5 MUCINEX ALONG WITH TWO SHOTS OF VODKA.
     Route: 048

REACTIONS (2)
  - OVERDOSE [None]
  - VOMITING [None]
